FAERS Safety Report 6003634-6 (Version None)
Quarter: 2008Q4

REPORT INFORMATION
  Report Type: 
  Country: None (occurrence: None)
  Receive Date: 20081216
  Receipt Date: 20081204
  Transmission Date: 20090506
  Serious: Yes (Hospitalization)
  Sender: FDA-Public Use
  Company Number: US-ELI_LILLY_AND_COMPANY-US200601000632

PATIENT
  Sex: Female

DRUGS (2)
  1. EVISTA [Suspect]
     Dosage: UNK, UNKNOWN
     Route: 048
     Dates: start: 20050901
  2. EVISTA [Suspect]
     Dosage: UNK, UNKNOWN
     Route: 048

REACTIONS (7)
  - ADVERSE EVENT [None]
  - COLON INJURY [None]
  - CONSTIPATION [None]
  - HOT FLUSH [None]
  - MEMORY IMPAIRMENT [None]
  - MUSCLE SPASMS [None]
  - PAIN [None]
